FAERS Safety Report 6082492-8 (Version None)
Quarter: 2009Q1

REPORT INFORMATION
  Report Type: 
  Country: None (occurrence: None)
  Receive Date: 20090218
  Receipt Date: 20090206
  Transmission Date: 20090719
  Serious: Yes (Other)
  Sender: FDA-Public Use
  Company Number: JP-BRISTOL-MYERS SQUIBB COMPANY-14506190

PATIENT
  Age: 44 Year
  Sex: Female
  Weight: 84 kg

DRUGS (7)
  1. ABILIFY [Suspect]
     Indication: SCHIZOPHRENIA
     Dosage: 12MGQD FROM 16-OCT TO 22OCT, 24MGQD FROM 23OCT TO 19NOV, 30MGQD FROM 20-NOV TO 17DEC08.
     Route: 048
     Dates: start: 20081120, end: 20081217
  2. ABILIFY [Suspect]
     Indication: SCHIZOPHRENIA
     Dosage: FORMULATION IS TAKEN AS POWDER.
     Route: 048
     Dates: start: 20081218
  3. ZYPREXA [Concomitant]
     Dosage: UNKNOWN-12NOV,13NOV,ON 29DEC08 2.5MG/D,INC TO 5MG 5JAN,INC TO 10MG 8JAN AND DEC TO 7.5MG ON 14JAN09
  4. DEPAKENE [Concomitant]
     Dates: end: 20081217
  5. BROTIZOLAM [Concomitant]
     Dates: end: 20081221
  6. PURSENNIDE [Concomitant]
  7. QUAZEPAM [Concomitant]
     Dates: start: 20081222

REACTIONS (1)
  - PSYCHIATRIC SYMPTOM [None]
